FAERS Safety Report 16924115 (Version 1)
Quarter: 2019Q4

REPORT INFORMATION
  Report Type: Spontaneous
  Country: CN (occurrence: CN)
  Receive Date: 20191016
  Receipt Date: 20191016
  Transmission Date: 20200122
  Serious: Yes (Other)
  Sender: FDA-Public Use
  Company Number: CN-PFIZER INC-2019438276

PATIENT
  Age: 71 Year
  Sex: Female

DRUGS (1)
  1. SOLU-MEDROL [Suspect]
     Active Substance: METHYLPREDNISOLONE SODIUM SUCCINATE
     Indication: HYPERSENSITIVITY
     Dosage: UNK, 1X/DAY
     Route: 042
     Dates: start: 20190718, end: 201907

REACTIONS (5)
  - Myocardial infarction [Recovering/Resolving]
  - Hypokalaemia [Recovering/Resolving]
  - Hypersensitivity [Recovering/Resolving]
  - Blood glucose increased [Recovering/Resolving]
  - Pulmonary embolism [Recovering/Resolving]

NARRATIVE: CASE EVENT DATE: 2019
